FAERS Safety Report 9552639 (Version 1)
Quarter: 2013Q3

REPORT INFORMATION
  Report Type: Spontaneous
  Country: US (occurrence: None)
  Receive Date: 20130802
  Receipt Date: 20130802
  Transmission Date: 20140515
  Serious: Yes (Hospitalization)
  Sender: FDA-Public Use
  Company Number: OPER20120722

PATIENT
  Age: 21 Year
  Sex: Female

DRUGS (1)
  1. OPANA ER [Suspect]

REACTIONS (2)
  - Cyclic vomiting syndrome [None]
  - Drug effect decreased [None]
